FAERS Safety Report 7384882-X (Version None)
Quarter: 2011Q1

REPORT INFORMATION
  Report Type: 
  Country: None (occurrence: None)
  Receive Date: 20110330
  Receipt Date: 20110320
  Transmission Date: 20110831
  Serious: Yes (Hospitalization)
  Sender: FDA-Public Use
  Company Number: IL-GENENTECH-315057

PATIENT
  Age: 25 Year
  Sex: Male

DRUGS (3)
  1. METHYLPREDNISOLONE [Concomitant]
     Indication: NEUROPATHY PERIPHERAL
     Dosage: UNK
  2. PREDNISONE [Concomitant]
     Indication: NEUROPATHY PERIPHERAL
     Dosage: UNK
  3. MABTHERA [Suspect]
     Indication: RHEUMATOID ARTHRITIS
     Dosage: UNK
     Route: 065
     Dates: start: 20110216

REACTIONS (5)
  - RASH [None]
  - SERUM SICKNESS-LIKE REACTION [None]
  - ARTHRALGIA [None]
  - POLYARTHRITIS [None]
  - ASTHENIA [None]
